FAERS Safety Report 15785938 (Version 1)
Quarter: 2019Q1

REPORT INFORMATION
  Report Type: Spontaneous
  Country: US (occurrence: US)
  Receive Date: 20190103
  Receipt Date: 20190103
  Transmission Date: 20190417
  Serious: No
  Sender: FDA-Public Use
  Company Number: US-BAYER-2018-245172

PATIENT
  Sex: Male

DRUGS (2)
  1. CLARITIN [Suspect]
     Active Substance: LORATADINE
     Indication: BLISTER
  2. CLARITIN [Suspect]
     Active Substance: LORATADINE
     Indication: RASH
     Route: 048

REACTIONS (4)
  - Product use in unapproved indication [None]
  - Rash [Unknown]
  - Blister [Unknown]
  - Insomnia [Unknown]

NARRATIVE: CASE EVENT DATE: 20181226
